FAERS Safety Report 8947996 (Version 1)
Quarter: 2012Q4

REPORT INFORMATION
  Report Type: 
  Country: US (occurrence: US)
  Receive Date: 20121204
  Receipt Date: 20121204
  Transmission Date: 20130627
  Serious: No
  Sender: FDA-Public Use
  Company Number: US-ASTRAZENECA-2012SE86241

PATIENT
  Age: 66 Year
  Sex: Female
  Weight: 86.2 kg

DRUGS (6)
  1. CRESTOR [Suspect]
     Indication: BLOOD CHOLESTEROL INCREASED
     Route: 048
     Dates: start: 2012
  2. CRESTOR [Suspect]
     Indication: BLOOD CHOLESTEROL INCREASED
     Route: 048
  3. CRESTOR [Suspect]
     Indication: BLOOD CHOLESTEROL INCREASED
     Route: 048
  4. NIACIN [Suspect]
     Route: 065
  5. SYNTHROID [Concomitant]
     Indication: HYPOTHYROIDISM
  6. CLONAZEPAM [Concomitant]
     Indication: SLEEP DISORDER

REACTIONS (5)
  - Heart rate increased [Recovered/Resolved]
  - Chest pain [Unknown]
  - Thyroid disorder [Unknown]
  - Pain in extremity [Not Recovered/Not Resolved]
  - Musculoskeletal pain [Not Recovered/Not Resolved]
